FAERS Safety Report 23735635 (Version 1)
Quarter: 2024Q2

REPORT INFORMATION
  Report Type: Spontaneous
  Country: US (occurrence: US)
  Receive Date: 20240412
  Receipt Date: 20240412
  Transmission Date: 20240716
  Serious: Yes (Hospitalization, Other)
  Sender: FDA-Public Use
  Company Number: US-GLAXOSMITHKLINE-US2024GSK046455

PATIENT

DRUGS (1)
  1. VALACYCLOVIR [Suspect]
     Active Substance: VALACYCLOVIR HYDROCHLORIDE
     Indication: Herpes virus infection
     Dosage: UNK
     Route: 064

REACTIONS (7)
  - Acute hepatic failure [Recovering/Resolving]
  - Hyperbilirubinaemia neonatal [Recovering/Resolving]
  - Hypertransaminasaemia [Recovering/Resolving]
  - Coagulopathy [Recovering/Resolving]
  - Pancytopenia [Recovering/Resolving]
  - Hypoglycaemia neonatal [Recovering/Resolving]
  - Foetal exposure during pregnancy [Unknown]
